FAERS Safety Report 17372344 (Version 1)
Quarter: 2020Q1

REPORT INFORMATION
  Report Type: Spontaneous
  Country: GB (occurrence: GB)
  Receive Date: 20200205
  Receipt Date: 20200205
  Transmission Date: 20200409
  Serious: Yes (Other)
  Sender: FDA-Public Use
  Company Number: GB-SA-2020SA026636

PATIENT
  Age: 68 Year
  Sex: Male

DRUGS (2)
  1. CABAZITAXEL [Suspect]
     Active Substance: CABAZITAXEL
     Indication: PROSTATE CANCER
     Dosage: 20 MG/M2, Q3W
     Route: 042
     Dates: start: 20191031, end: 20191031
  2. CABAZITAXEL [Suspect]
     Active Substance: CABAZITAXEL
     Dosage: 20 MG/M2, Q3W
     Route: 042
     Dates: start: 20200201, end: 20200201

REACTIONS (4)
  - Unevaluable event [Unknown]
  - Haematuria [Unknown]
  - Thrombosis [Unknown]
  - Prostatic specific antigen increased [Unknown]
